FAERS Safety Report 11031034 (Version 1)
Quarter: 2015Q2

REPORT INFORMATION
  Report Type: Spontaneous
  Country: US (occurrence: None)
  Receive Date: 20150414
  Receipt Date: 20150414
  Transmission Date: 20150821
  Serious: Yes (Other)
  Sender: FDA-Public Use
  Company Number: None

PATIENT
  Age: 51 Year
  Sex: Male

DRUGS (1)
  1. ANDRODERM [Suspect]
     Active Substance: TESTOSTERONE
     Indication: BLOOD TESTOSTERONE DECREASED
     Dosage: 4 MG/24HR DAILY TRANSCUT.
     Dates: start: 201410, end: 201503

REACTIONS (2)
  - Burns second degree [None]
  - Application site burn [None]

NARRATIVE: CASE EVENT DATE: 20150322
